FAERS Safety Report 7519719-9 (Version None)
Quarter: 2011Q2

REPORT INFORMATION
  Report Type: 
  Country: None (occurrence: None)
  Receive Date: 20110602
  Receipt Date: 20110518
  Transmission Date: 20111010
  Serious: Yes (Disabling, Other)
  Sender: FDA-Public Use
  Company Number: DE-WATSON-2011-06807

PATIENT
  Sex: Female

DRUGS (2)
  1. SEROQUEL XR [Interacting]
     Indication: PRODUCT USED FOR UNKNOWN INDICATION
     Dosage: 50 MG, DAILY
     Route: 065
  2. LAMOTRIGINE [Suspect]
     Indication: EPILEPSY
     Dosage: 25 MG, DAILY
     Route: 048

REACTIONS (26)
  - RESTLESSNESS [None]
  - EPILEPSY [None]
  - STOMATITIS [None]
  - EYE INFLAMMATION [None]
  - RASH [None]
  - SOMNOLENCE [None]
  - ADVERSE DRUG REACTION [None]
  - DYSPNOEA [None]
  - BACK PAIN [None]
  - PRESYNCOPE [None]
  - NAUSEA [None]
  - PHOTOPHOBIA [None]
  - BREAST HYPERPLASIA [None]
  - ARTHRALGIA [None]
  - MUSCLE TWITCHING [None]
  - DIZZINESS [None]
  - ASTHENIA [None]
  - WEIGHT DECREASED [None]
  - HEADACHE [None]
  - DRY MOUTH [None]
  - HYPERACUSIS [None]
  - DRUG INTERACTION [None]
  - INFLUENZA LIKE ILLNESS [None]
  - MUSCULOSKELETAL STIFFNESS [None]
  - GAIT DISTURBANCE [None]
  - HOT FLUSH [None]
